FAERS Safety Report 13383821 (Version 3)
Quarter: 2017Q2

REPORT INFORMATION
  Report Type: Spontaneous
  Country: LB (occurrence: LB)
  Receive Date: 20170329
  Receipt Date: 20170421
  Transmission Date: 20170830
  Serious: Yes (Death, Hospitalization)
  Sender: FDA-Public Use
  Company Number: LB-PFIZER INC-2017133694

PATIENT
  Age: 64 Year
  Sex: Female

DRUGS (3)
  1. IBRANCE [Suspect]
     Active Substance: PALBOCICLIB
     Indication: BREAST CANCER METASTATIC
     Dosage: 125 MG, 1X/DAY
     Route: 048
     Dates: start: 20170104, end: 20170322
  2. ALDACTONE [Concomitant]
     Active Substance: SPIRONOLACTONE
     Dosage: 1 TABLET/48HOURS
  3. TRITACE [Concomitant]
     Active Substance: RAMIPRIL
     Dosage: 1 TABLET/24HOURS

REACTIONS (3)
  - Infection [Fatal]
  - Confusional state [Fatal]
  - Hypotension [Fatal]

NARRATIVE: CASE EVENT DATE: 20170322
